FAERS Safety Report 14919692 (Version 1)
Quarter: 2018Q2

REPORT INFORMATION
  Report Type: Report from Study
  Country: AU (occurrence: AU)
  Receive Date: 20180521
  Receipt Date: 20180521
  Transmission Date: 20180711
  Serious: Yes (Hospitalization, Other)
  Sender: FDA-Public Use
  Company Number: AU-MYLANLABS-2017M1064523

PATIENT
  Age: 23 Year
  Sex: Male

DRUGS (1)
  1. CLOZARIL [Suspect]
     Active Substance: CLOZAPINE
     Indication: SCHIZOPHRENIA
     Dosage: 525 MG, UNK
     Route: 048
     Dates: start: 20170817

REACTIONS (4)
  - Drug abuse [Unknown]
  - Blood creatine phosphokinase increased [Recovering/Resolving]
  - Psychotic disorder [Unknown]
  - Mental impairment [Unknown]

NARRATIVE: CASE EVENT DATE: 2017
